FAERS Safety Report 7311847-6 (Version None)
Quarter: 2011Q1

REPORT INFORMATION
  Report Type: 
  Country: None (occurrence: None)
  Receive Date: 20110215
  Receipt Date: 20110215
  Transmission Date: 20110831
  Serious: Yes (Hospitalization)
  Sender: FDA-Public Use
  Company Number: None

PATIENT
  Age: 74 Year
  Sex: Male

DRUGS (14)
  1. CARDIA XT [Concomitant]
  2. ADVAIR DISKUS 100/50 [Concomitant]
  3. COUMADIN [Suspect]
     Indication: ATRIAL FIBRILLATION
     Dosage: 5MG MT W TH SUN  PO CHRONIC
     Route: 048
  4. QUINAPRIL [Concomitant]
  5. IMDUR [Concomitant]
  6. ZOCOR [Concomitant]
  7. COUMADIN [Suspect]
     Indication: ATRIAL FIBRILLATION
     Dosage: 7.5MG F SAT PO CHRONIC
     Route: 048
  8. XALATAN [Concomitant]
  9. NITROGLYCERIN [Concomitant]
  10. BUMEX [Concomitant]
  11. METOPROLOL [Concomitant]
  12. POTASSIUM CHLORIDE [Concomitant]
  13. ALBUTEROL [Concomitant]
  14. PULMICORT [Concomitant]

REACTIONS (9)
  - ANAEMIA [None]
  - HYPERCAPNIA [None]
  - OEDEMA [None]
  - HAEMORRHAGE [None]
  - RESPIRATORY FAILURE [None]
  - INTERNATIONAL NORMALISED RATIO INCREASED [None]
  - EROSIVE OESOPHAGITIS [None]
  - LIVER DISORDER [None]
  - HYPOPHAGIA [None]
